FAERS Safety Report 21809859 (Version 1)
Quarter: 2023Q1

REPORT INFORMATION
  Report Type: Report from Study
  Country: US (occurrence: US)
  Receive Date: 20230103
  Receipt Date: 20230103
  Transmission Date: 20230418
  Serious: No
  Sender: FDA-Public Use
  Company Number: US-ABBVIE-4213525

PATIENT
  Age: 58 Year
  Sex: Female

DRUGS (1)
  1. SKYRIZI [Suspect]
     Active Substance: RISANKIZUMAB-RZAA
     Indication: Psoriasis
     Dosage: 150 MG AT WEEK 0, WEEK 4 AND EVERY 12 WEEKS, SQ
     Route: 058
     Dates: start: 20220923

REACTIONS (3)
  - Bronchitis [Unknown]
  - Pruritus [Unknown]
  - Cough [Unknown]

NARRATIVE: CASE EVENT DATE: 20221101
